FAERS Safety Report 5914826-6 (Version None)
Quarter: 2008Q4

REPORT INFORMATION
  Report Type: 
  Country: None (occurrence: None)
  Receive Date: 20081008
  Receipt Date: 20081003
  Transmission Date: 20090506
  Serious: Yes (Other)
  Sender: FDA-Public Use
  Company Number: 2008040004

PATIENT
  Age: 87 Year
  Sex: Female

DRUGS (12)
  1. ASTELIN [Suspect]
     Indication: RHINITIS ALLERGIC
     Dosage: 274 MCG (274 MCG, AT BEDTIME) ,IN
     Dates: start: 20030101
  2. I-CAPS [Concomitant]
  3. PREDNISONE TAB [Concomitant]
  4. PROTONIX [Concomitant]
  5. CALCIUM [Concomitant]
  6. VERAPAMIL [Concomitant]
  7. MOISTURIZING EYE DROPS [Concomitant]
  8. EYE CAPS NV [Concomitant]
  9. VYTORIN [Concomitant]
  10. DARVOCET [Concomitant]
  11. LEVOTHROID [Concomitant]
  12. ASPIRIN [Concomitant]

REACTIONS (5)
  - CHOROIDAL NEOVASCULARISATION [None]
  - DRY EYE [None]
  - DYSPHONIA [None]
  - EYE HAEMORRHAGE [None]
  - MACULAR DEGENERATION [None]
